FAERS Safety Report 19290597 (Version 1)
Quarter: 2021Q2

REPORT INFORMATION
  Report Type: Spontaneous
  Country: US (occurrence: US)
  Receive Date: 20210521
  Receipt Date: 20210521
  Transmission Date: 20210717
  Serious: No
  Sender: FDA-Public Use
  Company Number: US-RADIUS HEALTH INC.-2020US003338

PATIENT
  Sex: Female

DRUGS (2)
  1. TYMLOS [Suspect]
     Active Substance: ABALOPARATIDE
     Dosage: 40 MCG/QD
     Route: 058
     Dates: start: 2020
  2. TYMLOS [Suspect]
     Active Substance: ABALOPARATIDE
     Indication: OSTEOPOROSIS
     Dosage: 80MCG/QD
     Route: 058
     Dates: start: 20200831

REACTIONS (5)
  - Headache [Recovering/Resolving]
  - Bone pain [Recovering/Resolving]
  - Insomnia [Recovering/Resolving]
  - Feeling jittery [Recovering/Resolving]
  - Off label use [Recovering/Resolving]
